FAERS Safety Report 23522252 (Version 1)
Quarter: 2024Q1

REPORT INFORMATION
  Report Type: Spontaneous
  Country: US (occurrence: US)
  Receive Date: 20240214
  Receipt Date: 20240214
  Transmission Date: 20240410
  Serious: No
  Sender: FDA-Public Use
  Company Number: US-HORIZON THERAPEUTICS-HZN-2023-007844

PATIENT

DRUGS (1)
  1. TEPEZZA [Suspect]
     Active Substance: TEPROTUMUMAB-TRBW
     Indication: Product used for unknown indication
     Dosage: APPROX 1.5 FULL COURSES OF TEPEZZA
     Route: 065

REACTIONS (3)
  - Diplopia [Unknown]
  - Condition aggravated [Unknown]
  - Off label use [Unknown]
